FAERS Safety Report 4539288-5 (Version None)
Quarter: 2004Q4

REPORT INFORMATION
  Report Type: 
  Country: None (occurrence: None)
  Receive Date: 20041228
  Receipt Date: 20040310
  Transmission Date: 20050328
  Serious: Yes (Hospitalization)
  Sender: FDA-Public Use
  Company Number: PHBS2004JP03369

PATIENT
  Age: 25 None
  Sex: Male

DRUGS (3)
  1. IMIPRAM TAB [Concomitant]
  2. PEMOLINE [Concomitant]
  3. RITALIN [Suspect]
     Indication: NARCOLEPSY
     Route: 065

REACTIONS (1)
  - CHOREA [None]
